FAERS Safety Report 14208410 (Version 1)
Quarter: 2017Q4

REPORT INFORMATION
  Report Type: Report from Study
  Country: US (occurrence: US)
  Receive Date: 20171121
  Receipt Date: 20171121
  Transmission Date: 20180321
  Serious: Yes (Hospitalization)
  Sender: FDA-Public Use
  Company Number: PHHO2017US015484

PATIENT
  Age: 60 Year
  Sex: Female

DRUGS (4)
  1. BLINDED NO TREATMENT RECEIVED [Suspect]
     Active Substance: INVESTIGATIONAL PRODUCT
     Indication: ICHTHYOSIS
     Dosage: CODE NOT BROKEN
     Route: 058
     Dates: start: 201702
  2. SYNTHROID [Concomitant]
     Active Substance: LEVOTHYROXINE SODIUM
     Indication: PRODUCT USED FOR UNKNOWN INDICATION
     Dosage: 100 UG, QD
     Route: 065
  3. BLINDED PLACEBO [Suspect]
     Active Substance: INVESTIGATIONAL PRODUCT
     Indication: ICHTHYOSIS
     Dosage: CODE NOT BROKEN
     Route: 058
     Dates: start: 201702
  4. BLINDED AIN457 [Suspect]
     Active Substance: SECUKINUMAB
     Indication: ICHTHYOSIS
     Dosage: CODE NOT BROKEN
     Route: 058
     Dates: start: 201702

REACTIONS (1)
  - Pyelonephritis [Recovered/Resolved]

NARRATIVE: CASE EVENT DATE: 20171008
